FAERS Safety Report 23842083 (Version 1)
Quarter: 2024Q2

REPORT INFORMATION
  Report Type: Spontaneous
  Country: US (occurrence: None)
  Receive Date: 20240509
  Receipt Date: 20240509
  Transmission Date: 20240716
  Serious: Yes (Other)
  Sender: FDA-Public Use
  Company Number: None

PATIENT
  Age: 61 Year
  Sex: Male

DRUGS (3)
  1. OLUMIANT [Suspect]
     Active Substance: BARICITINIB
     Indication: Alopecia universalis
     Dosage: FREQUENCY : DAILY;?
     Route: 048
     Dates: start: 20230509
  2. HYALURONIC ACID [Concomitant]
     Active Substance: HYALURONIC ACID
  3. TRIAMCIN ACE [Concomitant]

REACTIONS (2)
  - Knee operation [None]
  - Quality of life decreased [None]

NARRATIVE: CASE EVENT DATE: 20240501
